FAERS Safety Report 6117620-9 (Version None)
Quarter: 2009Q1

REPORT INFORMATION
  Report Type: 
  Country: None (occurrence: None)
  Receive Date: 20090314
  Receipt Date: 20090127
  Transmission Date: 20090719
  Serious: No
  Sender: FDA-Public Use
  Company Number: US-ABBOTT-09P-163-0499772-00

PATIENT
  Sex: Male
  Weight: 82.628 kg

DRUGS (1)
  1. HUMIRA [Suspect]
     Indication: PSORIATIC ARTHROPATHY
     Route: 058
     Dates: start: 20070901, end: 20081218

REACTIONS (3)
  - BRONCHITIS [None]
  - NASOPHARYNGITIS [None]
  - ORAL HERPES [None]
